FAERS Safety Report 25988547 (Version 2)
Quarter: 2025Q4

REPORT INFORMATION
  Report Type: Spontaneous
  Country: US (occurrence: None)
  Receive Date: 20251103
  Receipt Date: 20251127
  Transmission Date: 20260117
  Serious: No
  Sender: APOTEX
  Company Number: US-APOTEX-2025AP031263

PATIENT
  Sex: Male

DRUGS (2)
  1. FLUTICASONE [Suspect]
     Active Substance: FLUTICASONE
     Indication: Rhinitis allergic
     Dosage: 6 DOSAGE FORM (3 SPRAYS PER NOSTRIL)
  2. FLUTICASONE [Suspect]
     Active Substance: FLUTICASONE
     Dosage: 2 DOSAGE FORM, Q.H.S. (2 SPRAYS IN EACH NOSTRIL)

REACTIONS (2)
  - Dyspnoea [Unknown]
  - Drug ineffective [Unknown]
